FAERS Safety Report 4828525-5 (Version None)
Quarter: 2005Q4

REPORT INFORMATION
  Report Type: 
  Country: None (occurrence: None)
  Receive Date: 20051110
  Receipt Date: 20051028
  Transmission Date: 20060501
  Serious: Yes (Other)
  Sender: FDA-Public Use
  Company Number: 2005149607

PATIENT
  Age: 62 Year
  Sex: Male

DRUGS (12)
  1. DELAVIRDINE (DELAVIRDINE) [Suspect]
     Indication: HIV INFECTION
  2. LAMIVUDINE [Suspect]
     Indication: HIV INFECTION
  3. RITONAVIR (RITONAVIR) [Suspect]
     Indication: HIV INFECTION
  4. LOPINAVIR (LOPINAVIR) [Suspect]
     Indication: HIV INFECTION
  5. ENFUVIRTIDE (ENFUVIRTIDE) [Suspect]
     Indication: HIV INFECTION
  6. DIDANOSINE [Suspect]
     Indication: HIV INFECTION
  7. STAVUDINE [Suspect]
     Indication: HIV INFECTION
  8. FLUCONAZOLE [Concomitant]
  9. VERAPAMIL [Concomitant]
  10. FUROSEMIDE [Concomitant]
  11. DRONABINOL [Concomitant]
  12. MULTIVITAMIN [Concomitant]

REACTIONS (2)
  - ATRIAL FIBRILLATION [None]
  - ELECTROCARDIOGRAM QT PROLONGED [None]
